FAERS Safety Report 9190452 (Version 1)
Quarter: 2013Q1

REPORT INFORMATION
  Report Type: Spontaneous
  Country: BR (occurrence: BR)
  Receive Date: 20130326
  Receipt Date: 20130326
  Transmission Date: 20140127
  Serious: Yes (Other)
  Sender: FDA-Public Use
  Company Number: BR-PFIZER INC-2013093199

PATIENT
  Age: 62 Year
  Sex: Male
  Weight: 80 kg

DRUGS (7)
  1. LIPITOR [Suspect]
     Dosage: 20 MG, 1X/DAY
     Route: 048
     Dates: start: 20030801
  2. CARBAMAZEPINE [Concomitant]
     Indication: NEUROPATHY PERIPHERAL
     Dosage: UNK
     Dates: start: 2003
  3. CARVEDILOL [Concomitant]
     Indication: CARDIOVASCULAR DISORDER
     Dosage: UNK
     Dates: start: 2003
  4. ENALAPRIL [Concomitant]
     Indication: HYPERTENSION
     Dosage: UNK
     Dates: start: 2003
  5. OMEPRAZOL [Concomitant]
     Indication: GASTROINTESTINAL DISORDER
     Dosage: 40 MG, 1X/DAY
     Dates: start: 2003
  6. SUSTRATE [Concomitant]
     Indication: BLOOD DISORDER
     Dosage: 30 MG, 1X/DAY
     Dates: start: 2003
  7. PENTOXIFYLLINE [Concomitant]
     Dosage: UNK
     Dates: start: 2003

REACTIONS (3)
  - Anuria [Unknown]
  - Abdominal pain [Unknown]
  - Fluid retention [Unknown]
